FAERS Safety Report 20183326 (Version 1)
Quarter: 2021Q4

REPORT INFORMATION
  Report Type: Spontaneous
  Country: US (occurrence: US)
  Receive Date: 20211214
  Receipt Date: 20211214
  Transmission Date: 20220303
  Serious: Yes (Hospitalization, Other)
  Sender: FDA-Public Use
  Company Number: US-AMERICAN REGENT INC-2021003231

PATIENT
  Age: 39 Year
  Sex: Female

DRUGS (2)
  1. PROGESTERONE [Suspect]
     Active Substance: PROGESTERONE
     Indication: Prophylaxis
     Dosage: UNK
     Route: 030
  2. PROGESTERONE [Suspect]
     Active Substance: PROGESTERONE
     Indication: High risk pregnancy

REACTIONS (4)
  - Cholestasis [Recovering/Resolving]
  - Cholestasis of pregnancy [Recovering/Resolving]
  - Maternal exposure during pregnancy [Unknown]
  - Product use in unapproved indication [Unknown]
